FAERS Safety Report 8202339-0 (Version None)
Quarter: 2012Q1

REPORT INFORMATION
  Report Type: 
  Country: None (occurrence: None)
  Receive Date: 20120312
  Receipt Date: 20110405
  Transmission Date: 20120608
  Serious: Yes (Other)
  Sender: FDA-Public Use
  Company Number: US-ABBOTT-11P-163-0716898-00

PATIENT
  Age: 10 Year
  Sex: Male

DRUGS (7)
  1. DEPAKOTE [Suspect]
     Dosage: 750 MG
     Dates: start: 20110203
  2. KEPPRA [Concomitant]
     Indication: EPILEPSY
     Dates: start: 20060101
  3. DEPAKOTE [Suspect]
     Dosage: 500 MG
     Dates: start: 20101220, end: 20110105
  4. DEPAKOTE [Suspect]
     Indication: EPILEPSY
     Dosage: 250 MG
     Dates: start: 20100901, end: 20101206
  5. DEPAKOTE [Suspect]
     Dosage: 625 MG
     Dates: start: 20110105, end: 20110203
  6. DEPAKOTE [Suspect]
     Dosage: 375 MG
     Dates: start: 20101206, end: 20101220
  7. TRILEPTAL [Concomitant]
     Indication: EPILEPSY
     Dates: start: 20060101

REACTIONS (2)
  - MUSCLE TWITCHING [None]
  - COMPLEX PARTIAL SEIZURES [None]
